FAERS Safety Report 11238622 (Version 4)
Quarter: 2016Q1

REPORT INFORMATION
  Report Type: Report from Study
  Country: BR (occurrence: BR)
  Receive Date: 20150706
  Receipt Date: 20160321
  Transmission Date: 20160525
  Serious: Yes (Hospitalization, Disabling)
  Sender: FDA-Public Use
  Company Number: BR-ROCHE-1342204

PATIENT
  Sex: Female
  Weight: 107 kg

DRUGS (11)
  1. ACTEMRA [Suspect]
     Active Substance: TOCILIZUMAB
     Indication: RHEUMATOID ARTHRITIS
     Dosage: LAST DOSE PRIOR TO SAE : 01/SEP/2015
     Route: 042
     Dates: start: 20140128
  2. CAPTOPRIL. [Concomitant]
     Active Substance: CAPTOPRIL
  3. ARAVA [Concomitant]
     Active Substance: LEFLUNOMIDE
  4. DICLOFENAC [Concomitant]
     Active Substance: DICLOFENAC
  5. PREDNISONE. [Concomitant]
     Active Substance: PREDNISONE
  6. DIPYRONE [Concomitant]
     Active Substance: DIPYRONE
  7. DIAZEPAM. [Suspect]
     Active Substance: DIAZEPAM
     Indication: RHEUMATOID ARTHRITIS
     Route: 065
  8. DIAZEPAM. [Suspect]
     Active Substance: DIAZEPAM
     Indication: INSOMNIA
  9. MELOXICAM. [Concomitant]
     Active Substance: MELOXICAM
  10. HYDROCHLOROTHIAZIDE. [Concomitant]
     Active Substance: HYDROCHLOROTHIAZIDE
  11. OMEPRAZOLE. [Concomitant]
     Active Substance: OMEPRAZOLE

REACTIONS (15)
  - Abasia [Not Recovered/Not Resolved]
  - Pain in jaw [Not Recovered/Not Resolved]
  - Pyrexia [Unknown]
  - Localised infection [Recovering/Resolving]
  - Back pain [Not Recovered/Not Resolved]
  - Arthralgia [Not Recovered/Not Resolved]
  - Gait disturbance [Not Recovered/Not Resolved]
  - Abdominal pain upper [Not Recovered/Not Resolved]
  - Pain in extremity [Not Recovered/Not Resolved]
  - Pain [Not Recovered/Not Resolved]
  - Musculoskeletal pain [Not Recovered/Not Resolved]
  - Drug dependence [Unknown]
  - Drug ineffective [Unknown]
  - Headache [Unknown]
  - Glucose tolerance impaired [Unknown]
